FAERS Safety Report 7888491-5 (Version None)
Quarter: 2011Q4

REPORT INFORMATION
  Report Type: 
  Country: None (occurrence: None)
  Receive Date: 20111103
  Receipt Date: 20111030
  Transmission Date: 20120403
  Serious: Yes (Life-Threatening)
  Sender: FDA-Public Use
  Company Number: NZ-B.I. PHARMACEUTICALS,INC./RIDGEFIELD-2011-AU-02013AU

PATIENT
  Sex: Male

DRUGS (2)
  1. PRADAXA [Suspect]
  2. WARFARIN SODIUM [Concomitant]

REACTIONS (1)
  - MEDICATION ERROR [None]
